FAERS Safety Report 20476112 (Version 6)
Quarter: 2022Q2

REPORT INFORMATION
  Report Type: Report from Study
  Country: US (occurrence: US)
  Receive Date: 20220215
  Receipt Date: 20220429
  Transmission Date: 20220721
  Serious: No
  Sender: FDA-Public Use
  Company Number: US-NOVARTISTESTPH-NVSC2022US034588

PATIENT
  Sex: Male

DRUGS (2)
  1. ENTRESTO [Suspect]
     Active Substance: SACUBITRIL\VALSARTAN
     Indication: Product used for unknown indication
     Dosage: 1 DOSAGE FORM, BID
     Route: 048
  2. JARDIANCE [Concomitant]
     Active Substance: EMPAGLIFLOZIN
     Indication: Product used for unknown indication
     Dosage: UNK
     Route: 065

REACTIONS (11)
  - Pollakiuria [Unknown]
  - Dysphonia [Unknown]
  - Rash macular [Unknown]
  - Gastroenteritis [Unknown]
  - Weight decreased [Unknown]
  - Thirst [Unknown]
  - Hypertension [Unknown]
  - Asthenia [Unknown]
  - Dizziness postural [Unknown]
  - Dizziness [Unknown]
  - Arthralgia [Unknown]
